FAERS Safety Report 8271919-9 (Version None)
Quarter: 2012Q2

REPORT INFORMATION
  Report Type: 
  Country: None (occurrence: None)
  Receive Date: 20120410
  Receipt Date: 20111214
  Transmission Date: 20120825
  Serious: Yes (Life-Threatening, Other)
  Sender: FDA-Public Use
  Company Number: JP-VALEANT-2012VX001537

PATIENT
  Age: 66 Year
  Sex: Female

DRUGS (13)
  1. CAPECITABINE [Suspect]
     Route: 065
     Dates: start: 20070601, end: 20070901
  2. EPIRUBICIN [Suspect]
     Indication: BREAST CANCER
     Route: 065
     Dates: start: 20060801, end: 20070201
  3. TAXOTERE [Suspect]
     Indication: BREAST CANCER
     Route: 065
     Dates: start: 20060801
  4. CYCLOPHOSPHAMIDE [Suspect]
     Indication: BREAST CANCER
     Route: 065
     Dates: start: 20060801, end: 20070201
  5. TOREMIFENE [Suspect]
     Route: 065
     Dates: start: 20071001, end: 20080301
  6. ANASTROZOLE [Suspect]
     Indication: BREAST CANCER
     Route: 065
     Dates: start: 20080401, end: 20081001
  7. TAXOTERE [Suspect]
     Route: 065
     Dates: start: 20061109, end: 20070111
  8. FLUOROURACIL [Suspect]
     Indication: BREAST CANCER
     Route: 065
     Dates: start: 20060801, end: 20070201
  9. LETROZOLE [Suspect]
     Indication: BREAST CANCER
     Route: 065
     Dates: start: 20070201
  10. CAPECITABINE [Suspect]
     Indication: BREAST CANCER
     Route: 065
     Dates: start: 20070301, end: 20070501
  11. TOREMIFENE [Suspect]
     Indication: BREAST CANCER
     Route: 065
     Dates: start: 20070601, end: 20070901
  12. TS-1 [Suspect]
     Indication: BREAST CANCER METASTATIC
     Route: 065
     Dates: start: 20081001, end: 20110601
  13. CYCLOPHOSPHAMIDE [Suspect]
     Route: 065
     Dates: start: 20070301, end: 20070501

REACTIONS (2)
  - PANCYTOPENIA [None]
  - ACUTE MYELOID LEUKAEMIA [None]
